FAERS Safety Report 8790384 (Version 1)
Quarter: 2012Q4

REPORT INFORMATION
  Report Type: 
  Country: US (occurrence: US)
  Receive Date: 20120917
  Receipt Date: 20120917
  Transmission Date: 20130627
  Serious: Yes (Death)
  Sender: FDA-Public Use
  Company Number: US-CELGENEUS-163-21880-12091024

PATIENT
  Age: 57 Year
  Sex: Male

DRUGS (1)
  1. REVLIMID [Suspect]
     Indication: LEUKEMIC RETICULOENDOTHELIOSIS
     Dosage: 5 Milligram
     Route: 048
     Dates: start: 201208

REACTIONS (1)
  - Myelofibrosis [Fatal]
